FAERS Safety Report 7104809-5 (Version None)
Quarter: 2010Q4

REPORT INFORMATION
  Report Type: 
  Country: None (occurrence: None)
  Receive Date: 20101116
  Receipt Date: 20101108
  Transmission Date: 20110411
  Serious: Yes (Other)
  Sender: FDA-Public Use
  Company Number: US-US-EMD SERONO, INC.-7025581

PATIENT
  Sex: Female

DRUGS (7)
  1. REBIF [Suspect]
     Indication: MULTIPLE SCLEROSIS
     Route: 058
     Dates: start: 20050125
  2. PREMPRO [Concomitant]
  3. PROVIGIL [Concomitant]
  4. DYAZIDE [Concomitant]
  5. ZANAFLEX [Concomitant]
  6. NEURONTIN [Concomitant]
  7. ADVIL [Concomitant]

REACTIONS (3)
  - ARTHRALGIA [None]
  - LIVER FUNCTION TEST ABNORMAL [None]
  - RHEUMATOID ARTHRITIS [None]
